FAERS Safety Report 14218531 (Version 3)
Quarter: 2018Q1

REPORT INFORMATION
  Report Type: Spontaneous
  Country: JP (occurrence: JP)
  Receive Date: 20171123
  Receipt Date: 20180206
  Transmission Date: 20180508
  Serious: Yes (Life-Threatening, Hospitalization)
  Sender: FDA-Public Use
  Company Number: JP-PFIZER INC-2017501601

PATIENT
  Age: 15 Year
  Sex: Female
  Weight: 28 kg

DRUGS (5)
  1. CARBAMAZEPINE ^FUJINAGA^ [Suspect]
     Active Substance: CARBAMAZEPINE
     Indication: EPILEPSY
     Dosage: UNK
     Route: 048
     Dates: start: 20120823, end: 20170426
  2. ZARONTIN [Suspect]
     Active Substance: ETHOSUXIMIDE
     Indication: EPILEPSY
     Dosage: UNK
     Route: 048
     Dates: start: 20150803, end: 20170424
  3. SODIUM VALPROATE ^FUJINAGA^ [Suspect]
     Active Substance: VALPROATE SODIUM
     Indication: EPILEPSY
     Dosage: UNK
     Route: 048
     Dates: start: 20160822, end: 20170426
  4. PHENOBARBITAL. [Suspect]
     Active Substance: PHENOBARBITAL
     Indication: EPILEPSY
     Dosage: UNK
     Route: 048
     Dates: start: 20170327, end: 20170410
  5. CARNITINE [Concomitant]
     Active Substance: CARNITINE

REACTIONS (1)
  - Aplastic anaemia [Recovered/Resolved]
